FAERS Safety Report 4643500-1 (Version None)
Quarter: 2005Q2

REPORT INFORMATION
  Report Type: 
  Country: None (occurrence: None)
  Receive Date: 20050325
  Receipt Date: 20050110
  Transmission Date: 20051028
  Serious: No
  Sender: FDA-Public Use
  Company Number: IND-AE-05-SAN-002

PATIENT
  Age: 76 Year
  Sex: Female
  Weight: 40.8237 kg

DRUGS (4)
  1. SANCTURA [Suspect]
     Indication: HYPERTONIC BLADDER
     Dosage: 10MG-QD-ORAL
     Route: 048
     Dates: start: 20050105
  2. PREMPRO [Concomitant]
  3. ULTRACET [Concomitant]
  4. RESTORIL [Concomitant]

REACTIONS (2)
  - ABDOMINAL DISCOMFORT [None]
  - FATIGUE [None]
